FAERS Safety Report 9265162 (Version 2)
Quarter: 2013Q2

REPORT INFORMATION
  Report Type: Spontaneous
  Country: US (occurrence: US)
  Receive Date: 20130501
  Receipt Date: 20130531
  Transmission Date: 20140414
  Serious: No
  Sender: FDA-Public Use
  Company Number: US-PFIZER INC-2013133447

PATIENT
  Age: 56 Year
  Sex: Female
  Weight: 76.64 kg

DRUGS (3)
  1. CELEBREX [Suspect]
     Indication: PAIN
     Dosage: 200 MG, 1X/DAY
     Dates: start: 20130412, end: 20130419
  2. CELEBREX [Suspect]
     Indication: OSTEOARTHRITIS
  3. VICODIN [Suspect]
     Indication: PAIN
     Dosage: TWO TABLETS OF 5/225 MG, EVERY 4 HRS

REACTIONS (5)
  - Drug ineffective [Unknown]
  - Feeling abnormal [Unknown]
  - Fatigue [Unknown]
  - Drug intolerance [Unknown]
  - Dyspepsia [Unknown]
